FAERS Safety Report 19289067 (Version 1)
Quarter: 2021Q2

REPORT INFORMATION
  Report Type: Spontaneous
  Country: CN (occurrence: CN)
  Receive Date: 20210521
  Receipt Date: 20210521
  Transmission Date: 20210717
  Serious: Yes (Other)
  Sender: FDA-Public Use
  Company Number: CN-BAYER-2021-145267

PATIENT
  Age: 44 Year
  Sex: Male

DRUGS (2)
  1. IMMUNOGLOBULINS NOS [Concomitant]
     Active Substance: IMMUNE GLOBULIN NOS
     Route: 048
  2. STIVARGA [Suspect]
     Active Substance: REGORAFENIB
     Indication: RECTAL CANCER STAGE IV
     Dosage: 10 MG, QD
     Route: 048
     Dates: start: 20200114

REACTIONS (7)
  - Hepatic steatosis [None]
  - Metastases to pelvis [None]
  - Fatigue [Recovering/Resolving]
  - Abdominal pain lower [None]
  - Cystic lung disease [None]
  - Metastases to kidney [None]
  - Pulmonary mass [None]
